FAERS Safety Report 21737196 (Version 1)
Quarter: 2022Q4

REPORT INFORMATION
  Report Type: Report from Study
  Country: GR (occurrence: GR)
  Receive Date: 20221216
  Receipt Date: 20221216
  Transmission Date: 20230113
  Serious: Yes (Death, Other)
  Sender: FDA-Public Use
  Company Number: GR-TAKEDA-2022TUS096375

PATIENT
  Sex: Male

DRUGS (3)
  1. IDURSULFASE [Suspect]
     Active Substance: IDURSULFASE
     Indication: Mucopolysaccharidosis II
     Dosage: 0.5 MILLIGRAM/KILOGRAM, 1/WEEK
     Route: 042
     Dates: start: 20100329
  2. MEDROL [Concomitant]
     Active Substance: METHYLPREDNISOLONE
     Indication: Prophylaxis
     Dosage: UNK
     Route: 048
     Dates: start: 20120125
  3. MEDROL [Concomitant]
     Active Substance: METHYLPREDNISOLONE
     Indication: Dermatitis allergic
     Dosage: UNK
     Route: 048
     Dates: start: 20130220, end: 20130227

REACTIONS (1)
  - Death [Fatal]

NARRATIVE: CASE EVENT DATE: 20221210
